FAERS Safety Report 4854568-1 (Version None)
Quarter: 2005Q4

REPORT INFORMATION
  Report Type: 
  Country: None (occurrence: None)
  Receive Date: 20051215
  Receipt Date: 20051209
  Transmission Date: 20060501
  Serious: Yes (Life-Threatening)
  Sender: FDA-Public Use
  Company Number: 2005AP06341

PATIENT
  Age: 26625 Day
  Sex: Male

DRUGS (9)
  1. SEROQUEL [Suspect]
     Indication: SCHIZOPHRENIA
     Route: 048
     Dates: start: 20051125, end: 20051127
  2. GOODMIN [Concomitant]
     Route: 048
     Dates: start: 20051125, end: 20051127
  3. ARICEPT [Concomitant]
     Indication: DEMENTIA
     Route: 048
  4. BLOPRESS [Concomitant]
     Indication: HYPERTENSION
     Route: 048
  5. AMISALIN [Concomitant]
     Indication: ARRHYTHMIA
     Route: 048
  6. FERROMIA [Concomitant]
     Indication: IRON DEFICIENCY ANAEMIA
     Route: 048
  7. ZYRTEC [Concomitant]
     Route: 048
  8. GASMOTIN [Concomitant]
     Indication: GASTRITIS
     Route: 048
  9. DIAMOX [Concomitant]
     Indication: GLAUCOMA
     Route: 048

REACTIONS (2)
  - BLOOD PRESSURE DECREASED [None]
  - SHOCK [None]
